FAERS Safety Report 15663952 (Version 1)
Quarter: 2018Q4

REPORT INFORMATION
  Report Type: Spontaneous
  Country: BR (occurrence: BR)
  Receive Date: 20181128
  Receipt Date: 20181128
  Transmission Date: 20190205
  Serious: Yes (Other)
  Sender: FDA-Public Use
  Company Number: BR-CORDEN PHARMA LATINA S.P.A.-BR-2018COR000145

PATIENT
  Sex: Male

DRUGS (5)
  1. CARBOPLATIN. [Suspect]
     Active Substance: CARBOPLATIN
     Indication: PRODUCT USED FOR UNKNOWN INDICATION
     Dosage: UNK, (AUC5, THE 26TH AND 30TH WEEKS)
  2. RADIOTHERAPY [Suspect]
     Active Substance: RADIATION THERAPY
     Indication: PRODUCT USED FOR UNKNOWN INDICATION
     Dosage: UNK
     Route: 065
  3. CARBOPLATIN. [Suspect]
     Active Substance: CARBOPLATIN
     Dosage: UNK, (FOR 4 WEEKS)
     Route: 063
  4. PACLITAXEL. [Suspect]
     Active Substance: PACLITAXEL
     Indication: PRODUCT USED FOR UNKNOWN INDICATION
     Dosage: 175/M2 (26TH AND 30TH WEEKS)
     Route: 064
  5. PACLITAXEL. [Suspect]
     Active Substance: PACLITAXEL
     Dosage: UNK,)  (FOR 4 WEEKS)
     Route: 063

REACTIONS (3)
  - Foetal exposure during pregnancy [Unknown]
  - Deafness bilateral [Unknown]
  - Maternal exposure during breast feeding [Unknown]
